FAERS Safety Report 7635008-6 (Version None)
Quarter: 2011Q3

REPORT INFORMATION
  Report Type: 
  Country: None (occurrence: None)
  Receive Date: 20110726
  Receipt Date: 20110715
  Transmission Date: 20111222
  Serious: Yes (Hospitalization)
  Sender: FDA-Public Use
  Company Number: IE-US-EMD SERONO, INC.-7053515

PATIENT
  Sex: Female

DRUGS (4)
  1. UNSPECIFIED MEDICATIONS [Concomitant]
  2. LIORESAL [Concomitant]
     Indication: MULTIPLE SCLEROSIS
  3. REBIF [Suspect]
     Indication: MULTIPLE SCLEROSIS
     Route: 058
  4. TRAMADOL HCL [Concomitant]
     Indication: ANALGESIC THERAPY
     Dates: end: 20110101

REACTIONS (1)
  - GRAND MAL CONVULSION [None]
